FAERS Safety Report 9353224 (Version 1)
Quarter: 2013Q2

REPORT INFORMATION
  Report Type: Spontaneous
  Country: US (occurrence: None)
  Receive Date: 20130617
  Receipt Date: 20130617
  Transmission Date: 20140414
  Serious: Yes (Disabling)
  Sender: FDA-Public Use
  Company Number: None

PATIENT
  Age: 58 Year
  Sex: Male
  Weight: 92.08 kg

DRUGS (1)
  1. PREDNISONE [Suspect]
     Indication: NECK PAIN
     Dates: start: 20121017, end: 20121025

REACTIONS (1)
  - Tinnitus [None]
